FAERS Safety Report 26087017 (Version 2)
Quarter: 2025Q4

REPORT INFORMATION
  Report Type: Spontaneous
  Country: TR (occurrence: TR)
  Receive Date: 20251125
  Receipt Date: 20251205
  Transmission Date: 20260118
  Serious: Yes (Hospitalization, Other)
  Sender: RANBAXY
  Company Number: TR-SUN PHARMACEUTICAL INDUSTRIES INC-2025R1-538035

PATIENT
  Age: 4 Year
  Sex: Female

DRUGS (1)
  1. METRONIDAZOLE [Suspect]
     Active Substance: METRONIDAZOLE
     Indication: Gastroenteritis
     Dosage: UNK
     Route: 065

REACTIONS (3)
  - Neurotoxicity [Unknown]
  - Ataxia [Unknown]
  - Vertigo [Unknown]
